FAERS Safety Report 8048043-3 (Version None)
Quarter: 2012Q1

REPORT INFORMATION
  Report Type: 
  Country: None (occurrence: None)
  Receive Date: 20120117
  Receipt Date: 20120110
  Transmission Date: 20120608
  Serious: Yes (Other)
  Sender: FDA-Public Use
  Company Number: US-BIOGENIDEC-2011BI044506

PATIENT
  Sex: Female

DRUGS (1)
  1. AVONEX [Suspect]
     Indication: EXPOSURE VIA FATHER
     Dates: start: 20030630

REACTIONS (4)
  - AMNIOTIC FLUID VOLUME DECREASED [None]
  - PLACENTAL DISORDER [None]
  - SUBCHORIONIC HAEMORRHAGE [None]
  - BREECH PRESENTATION [None]
